FAERS Safety Report 20925123 (Version 1)
Quarter: 2022Q2

REPORT INFORMATION
  Report Type: Report from Study
  Country: US (occurrence: US)
  Receive Date: 20220607
  Receipt Date: 20220607
  Transmission Date: 20220720
  Serious: Yes (Life-Threatening, Hospitalization, Other)
  Sender: FDA-Public Use
  Company Number: US-GILEAD-2022-0583686

PATIENT
  Age: 48 Year
  Sex: Male
  Weight: 83.2 kg

DRUGS (13)
  1. REMDESIVIR [Suspect]
     Active Substance: REMDESIVIR
     Indication: COVID-19
     Dosage: 100 MG, QD
     Route: 042
     Dates: start: 20210125, end: 20210126
  2. PULMOZYME [Suspect]
     Active Substance: DORNASE ALFA
     Indication: COVID-19
     Dosage: 5 MG, BID
     Route: 055
     Dates: start: 20210125, end: 20210202
  3. PULMOZYME [Suspect]
     Active Substance: DORNASE ALFA
     Dosage: 5 MG
     Route: 055
     Dates: start: 20210204
  4. DEXAMETHASONE [Concomitant]
     Active Substance: DEXAMETHASONE
     Indication: COVID-19
     Dosage: 6 MG, QD
     Route: 042
     Dates: start: 20210123, end: 20210131
  5. ENOXAPARIN [Concomitant]
     Active Substance: ENOXAPARIN
     Indication: Thrombosis prophylaxis
     Dosage: 40 MG Q12 HR
     Dates: start: 20210123, end: 20210203
  6. AZITHROMYCIN [Concomitant]
     Active Substance: AZITHROMYCIN
     Dosage: 500 MG
     Route: 042
     Dates: start: 20210122, end: 20210129
  7. CEFTRIAXONE [Concomitant]
     Active Substance: CEFTRIAXONE
     Dosage: 1 G
     Route: 042
     Dates: start: 20210122, end: 20210129
  8. NOREPINEPHRINE [Concomitant]
     Active Substance: NOREPINEPHRINE
     Dosage: UNK
     Route: 042
     Dates: start: 20210120, end: 20210206
  9. VASOPRESSIN [Concomitant]
     Active Substance: VASOPRESSIN
     Dosage: 6 ML
     Route: 042
     Dates: start: 20210131, end: 20210206
  10. VECURONIUM [Concomitant]
     Active Substance: VECURONIUM BROMIDE
     Dosage: UNK
     Dates: start: 20210202, end: 20210202
  11. CISATRACURIUM [Concomitant]
     Active Substance: CISATRACURIUM
     Dosage: 100 ML
     Dates: start: 20210202, end: 20210205
  12. CEFEPIME [Concomitant]
     Active Substance: CEFEPIME HYDROCHLORIDE
     Indication: Infection
     Dosage: 1 G
     Dates: start: 20210203
  13. HEPARIN [Concomitant]
     Active Substance: HEPARIN SODIUM
     Indication: Thrombosis prophylaxis
     Dosage: 5000 UNITS
     Route: 058
     Dates: start: 20210203, end: 20210205

REACTIONS (1)
  - Acute kidney injury [Not Recovered/Not Resolved]

NARRATIVE: CASE EVENT DATE: 20210131
